FAERS Safety Report 7587292-5 (Version None)
Quarter: 2011Q3

REPORT INFORMATION
  Report Type: 
  Country: None (occurrence: None)
  Receive Date: 20110701
  Receipt Date: 20110623
  Transmission Date: 20111222
  Serious: Yes (Hospitalization, Other)
  Sender: FDA-Public Use
  Company Number: CZ-ABBOTT-11P-217-0719306-00

PATIENT
  Sex: Male
  Weight: 91 kg

DRUGS (3)
  1. HUMIRA [Suspect]
     Indication: ANKYLOSING SPONDYLITIS
     Route: 058
     Dates: start: 20100729, end: 20110331
  2. KETOPROFEN [Concomitant]
     Dates: start: 20100801, end: 20110429
  3. PHOSPHOLIDIDA ESSENTIALIA [Concomitant]
     Indication: PRODUCT USED FOR UNKNOWN INDICATION
     Dates: start: 20101206, end: 20110429

REACTIONS (24)
  - VASCULITIS [None]
  - DYSPNOEA [None]
  - GLOMERULONEPHRITIS [None]
  - C-REACTIVE PROTEIN INCREASED [None]
  - HYPERHIDROSIS [None]
  - FATIGUE [None]
  - RHINITIS [None]
  - ARTHRALGIA [None]
  - BODY TEMPERATURE INCREASED [None]
  - ABDOMINAL PAIN [None]
  - BLOOD IMMUNOGLOBULIN G INCREASED [None]
  - ILL-DEFINED DISORDER [None]
  - INFLAMMATION [None]
  - SPLENOMEGALY [None]
  - RED BLOOD CELL SEDIMENTATION RATE INCREASED [None]
  - PROTEINURIA [None]
  - HAEMATURIA [None]
  - HYPERCATABOLISM [None]
  - PALPITATIONS [None]
  - ANTINEUTROPHIL CYTOPLASMIC ANTIBODY POSITIVE [None]
  - ABDOMINAL PAIN UPPER [None]
  - NEUTROPHIL COUNT INCREASED [None]
  - WEIGHT DECREASED [None]
  - LYMPHOMA [None]
